FAERS Safety Report 8741303 (Version 2)
Quarter: 2014Q3

REPORT INFORMATION
  Report Type: Spontaneous
  Country: US (occurrence: US)
  Receive Date: 20120824
  Receipt Date: 20140718
  Transmission Date: 20150326
  Serious: Yes (Other)
  Sender: FDA-Public Use
  Company Number: US-ASTRAZENECA-2012SE11964

PATIENT
  Age: 65 Year
  Sex: Female

DRUGS (1)
  1. SYMBICORT [Suspect]
     Active Substance: BUDESONIDE\FORMOTEROL FUMARATE DIHYDRATE
     Dosage: 160/4.5MG ON UNKNOWN FREQUENCY
     Route: 055

REACTIONS (3)
  - Fall [Unknown]
  - Myocardial infarction [Unknown]
  - Chronic obstructive pulmonary disease [Unknown]
